FAERS Safety Report 23063991 (Version 1)
Quarter: 2023Q4

REPORT INFORMATION
  Report Type: Report from Study
  Country: FR (occurrence: FR)
  Receive Date: 20231013
  Receipt Date: 20231013
  Transmission Date: 20240110
  Serious: Yes (Other)
  Sender: FDA-Public Use
  Company Number: FR-DSJP-DSE-2023-141948

PATIENT
  Sex: Female
  Weight: 66 kg

DRUGS (2)
  1. ENHERTU [Suspect]
     Active Substance: FAM-TRASTUZUMAB DERUXTECAN-NXKI
     Indication: HER2 negative breast cancer
     Dosage: UNK
     Route: 065
     Dates: start: 20230704
  2. ENHERTU [Suspect]
     Active Substance: FAM-TRASTUZUMAB DERUXTECAN-NXKI
     Indication: Breast cancer metastatic

REACTIONS (10)
  - Loss of consciousness [Unknown]
  - Chills [Recovered/Resolved]
  - Pain [Unknown]
  - Neutropenia [Unknown]
  - Asthenia [Unknown]
  - Muscle spasms [Unknown]
  - Pruritus [Unknown]
  - Diarrhoea [Unknown]
  - Thrombocytopenia [Unknown]
  - Pyrexia [Recovered/Resolved]
